FAERS Safety Report 17474769 (Version 1)
Quarter: 2020Q1

REPORT INFORMATION
  Report Type: Spontaneous
  Country: US (occurrence: US)
  Receive Date: 20200228
  Receipt Date: 20200228
  Transmission Date: 20200409
  Serious: Yes (Other)
  Sender: FDA-Public Use
  Company Number: None

PATIENT
  Age: 56 Year
  Sex: Female
  Weight: 97.56 kg

DRUGS (5)
  1. OZEMPIC [Suspect]
     Active Substance: SEMAGLUTIDE
     Indication: DIABETES MELLITUS
     Dosage: ?          OTHER FREQUENCY:WEEKLY;?
     Route: 058
     Dates: start: 20180921, end: 20190329
  2. TOUJEO [Concomitant]
     Active Substance: INSULIN GLARGINE
     Dates: start: 20170727
  3. AMLODIPINE [Concomitant]
     Active Substance: AMLODIPINE BESYLATE
     Dates: start: 20170727
  4. PRAVASTATIN. [Concomitant]
     Active Substance: PRAVASTATIN
     Dates: start: 20170727
  5. TELMISARTAN. [Concomitant]
     Active Substance: TELMISARTAN
     Dates: start: 20171221

REACTIONS (1)
  - Urticaria [None]

NARRATIVE: CASE EVENT DATE: 20190329
